FAERS Safety Report 11749496 (Version 6)
Quarter: 2016Q2

REPORT INFORMATION
  Report Type: Spontaneous
  Country: US (occurrence: US)
  Receive Date: 20151118
  Receipt Date: 20160408
  Transmission Date: 20160815
  Serious: Yes (Hospitalization)
  Sender: FDA-Public Use
  Company Number: US-PFIZER INC-2014336146

PATIENT
  Age: 91 Year
  Sex: Female
  Weight: 112 kg

DRUGS (6)
  1. XALATAN [Suspect]
     Active Substance: LATANOPROST
     Indication: GLAUCOMA
     Dosage: 2 GTT, 1X/DAY (ONE DROP BOTH EYES AT NIGHT)
  2. XALATAN [Suspect]
     Active Substance: LATANOPROST
     Dosage: 1 GTT, 1X/DAY (125UG/2.5ML, 1 DROP AT NIGHT)
  3. LUMIGAN [Concomitant]
     Active Substance: BIMATOPROST
     Dosage: 1 GTT, 1X/DAY (1 DROP AT NIGHT)
  4. XALATAN [Suspect]
     Active Substance: LATANOPROST
     Dosage: UNK
  5. LUMIGAN [Concomitant]
     Active Substance: BIMATOPROST
     Indication: GLAUCOMA
     Dosage: 2 GTT (ONE DROP IN EACH EYE AT NIGHT), 1X/DAY
  6. LUMIGAN [Concomitant]
     Active Substance: BIMATOPROST
     Dosage: UNK

REACTIONS (5)
  - Abnormal sensation in eye [Recovered/Resolved]
  - Intraocular pressure test abnormal [Unknown]
  - Eye disorder [Recovered/Resolved]
  - Myopia [Unknown]
  - Visual impairment [Recovered/Resolved]

NARRATIVE: CASE EVENT DATE: 201510
